FAERS Safety Report 8433377-0 (Version None)
Quarter: 2012Q2

REPORT INFORMATION
  Report Type: 
  Country: None (occurrence: None)
  Receive Date: 20120613
  Receipt Date: 20120608
  Transmission Date: 20120825
  Serious: Yes (Hospitalization)
  Sender: FDA-Public Use
  Company Number: GB-MERCK-1206USA01540

PATIENT
  Age: 71 Year
  Sex: Male

DRUGS (7)
  1. CARVEDILOL [Concomitant]
     Route: 048
     Dates: start: 20111014
  2. METFORMIN [Concomitant]
     Route: 065
     Dates: start: 20110728
  3. ASPIRIN [Concomitant]
     Route: 048
     Dates: start: 20111209
  4. GLIMEPIRIDE [Concomitant]
     Route: 048
     Dates: start: 20100728
  5. ZOCOR [Suspect]
     Indication: HYPERCHOLESTEROLAEMIA
     Route: 048
     Dates: start: 20120101, end: 20120502
  6. CYANOCOBALAMIN [Concomitant]
     Route: 048
     Dates: start: 20110201
  7. PERINDOPRIL [Concomitant]
     Route: 048
     Dates: start: 20111014

REACTIONS (4)
  - URINE OUTPUT DECREASED [None]
  - BLOOD CREATININE INCREASED [None]
  - RHABDOMYOLYSIS [None]
  - HYPERKALAEMIA [None]
